FAERS Safety Report 16305251 (Version 1)
Quarter: 2019Q2

REPORT INFORMATION
  Report Type: Spontaneous
  Country: ES (occurrence: ES)
  Receive Date: 20190513
  Receipt Date: 20190513
  Transmission Date: 20190711
  Serious: Yes (Death, Hospitalization)
  Sender: FDA-Public Use
  Company Number: ES-MYLANLABS-2019M1044159

PATIENT
  Age: 40 Year
  Sex: Female

DRUGS (4)
  1. FORTECORTIN                        /00016001/ [Concomitant]
     Active Substance: DEXAMETHASONE
     Dosage: 1 CP DIA
     Route: 048
     Dates: start: 20180224, end: 20180227
  2. DOCETAXEL. [Suspect]
     Active Substance: DOCETAXEL
     Indication: BREAST CANCER
     Dosage: 125 MILLIGRAM, CYCLE
     Route: 042
     Dates: start: 20180223, end: 20180223
  3. CARBOPLATINO [Suspect]
     Active Substance: CARBOPLATIN
     Indication: BREAST CANCER
     Dosage: 590 MILLIGRAM, CYCLE
     Route: 042
     Dates: start: 20180223, end: 20180223
  4. TRASTUZUMAB. [Suspect]
     Active Substance: TRASTUZUMAB
     Indication: PRODUCT USED FOR UNKNOWN INDICATION
     Dosage: 455 MILLIGRAM
     Route: 042
     Dates: start: 20180223, end: 20180223

REACTIONS (2)
  - Large intestine perforation [Fatal]
  - Colitis [Fatal]

NARRATIVE: CASE EVENT DATE: 20180302
